FAERS Safety Report 18540790 (Version 3)
Quarter: 2020Q4

REPORT INFORMATION
  Report Type: Report from Study
  Country: US (occurrence: US)
  Receive Date: 20201124
  Receipt Date: 20201211
  Transmission Date: 20210114
  Serious: Yes (Death, Hospitalization, Other)
  Sender: FDA-Public Use
  Company Number: US-JNJFOC-20201009188

PATIENT
  Age: 69 Year
  Sex: Female
  Weight: 54.48 kg

DRUGS (7)
  1. VELETRI [Suspect]
     Active Substance: EPOPROSTENOL
     Indication: PULMONARY ARTERIAL HYPERTENSION
     Route: 042
  2. VELETRI [Suspect]
     Active Substance: EPOPROSTENOL
     Route: 042
  3. ADEMPAS [Concomitant]
     Active Substance: RIOCIGUAT
  4. DIGOXIN. [Concomitant]
     Active Substance: DIGOXIN
  5. VELETRI [Suspect]
     Active Substance: EPOPROSTENOL
     Route: 042
  6. MIDODRINE [Concomitant]
     Active Substance: MIDODRINE
     Indication: HYPOTENSION
  7. AMBRISENTAN [Concomitant]
     Active Substance: AMBRISENTAN

REACTIONS (13)
  - Hypotension [Not Recovered/Not Resolved]
  - Decreased appetite [Unknown]
  - Diarrhoea [Not Recovered/Not Resolved]
  - Pulmonary arterial hypertension [Recovering/Resolving]
  - Dyspnoea exertional [Unknown]
  - Rectal prolapse [Unknown]
  - Device alarm issue [Recovered/Resolved]
  - Right ventricular failure [Recovering/Resolving]
  - Chest discomfort [Unknown]
  - Disorientation [Unknown]
  - Musculoskeletal pain [Unknown]
  - Death [Fatal]
  - Dysphagia [Unknown]

NARRATIVE: CASE EVENT DATE: 202008
